FAERS Safety Report 5647020-7 (Version None)
Quarter: 2008Q1

REPORT INFORMATION
  Report Type: 
  Country: None (occurrence: None)
  Receive Date: 20080303
  Receipt Date: 20080229
  Transmission Date: 20080703
  Serious: Yes (Other)
  Sender: FDA-Public Use
  Company Number: B0510245A

PATIENT
  Age: 44 Year
  Sex: Female
  Weight: 56 kg

DRUGS (3)
  1. CIMETIDINE [Suspect]
     Indication: DYSPEPSIA
     Dosage: 800MG PER DAY
     Route: 048
     Dates: start: 19990924, end: 20070605
  2. LISINOPRIL [Concomitant]
     Indication: HYPERTENSION
     Route: 048
     Dates: start: 20070322, end: 20070605
  3. LORATADINE [Concomitant]
     Route: 048
     Dates: start: 20070504, end: 20070605

REACTIONS (1)
  - ANTIDIURETIC HORMONE ABNORMALITY [None]
